FAERS Safety Report 5477118-8 (Version None)
Quarter: 2007Q4

REPORT INFORMATION
  Report Type: 
  Country: None (occurrence: None)
  Receive Date: 20071004
  Receipt Date: 20070924
  Transmission Date: 20080405
  Serious: Yes (Death, Hospitalization, Other)
  Sender: FDA-Public Use
  Company Number: US-TYCO HEALTHCARE/MALLINCKRODT-T200701160

PATIENT

DRUGS (3)
  1. HYDROCODONE BITARTRATE AND ACETAMINOPHEN [Suspect]
     Indication: SPINAL COLUMN STENOSIS
     Dosage: 2 TABLETS EVERY 4 HOURS
     Route: 048
     Dates: start: 20070906, end: 20070906
  2. DILANTIN [Concomitant]
     Indication: CONVULSION
     Dosage: UNK, QD
     Route: 048
  3. ANTIHYPERTENSIVES [Concomitant]
     Indication: HYPERTENSION
     Dosage: UNK, QD
     Route: 048

REACTIONS (9)
  - ABDOMINAL PAIN [None]
  - CARDIAC FAILURE [None]
  - DIARRHOEA [None]
  - HYPOTENSION [None]
  - LARGE INTESTINE PERFORATION [None]
  - MYOCARDIAL ISCHAEMIA [None]
  - RENAL FAILURE [None]
  - SEPSIS [None]
  - VOMITING [None]
